FAERS Safety Report 9688686 (Version 1)
Quarter: 2013Q4

REPORT INFORMATION
  Report Type: Spontaneous
  Country: US (occurrence: None)
  Receive Date: 20131113
  Receipt Date: 20131113
  Transmission Date: 20140711
  Serious: Yes (Other)
  Sender: FDA-Public Use
  Company Number: UTC-040113

PATIENT
  Age: 47 Year
  Sex: Female
  Weight: 52.27 kg

DRUGS (3)
  1. TYVASO [Suspect]
     Indication: PULMONARY ARTERIAL HYPERTENSION
     Dosage: 216 MCG (54 MCG,4 IN 1 D),INHALATION
     Route: 055
     Dates: start: 20100120
  2. LETAIRIS [Suspect]
     Indication: PRODUCT USED FOR UNKNOWN INDICATION
     Dosage: 10 MG (10 MG, 1 IN 1 D) , ORAL
     Route: 048
     Dates: start: 20110912
  3. REVATIO (SILDENAFIL CITRATE) (UNKNOWN) (SILDENAFIL) [Concomitant]

REACTIONS (6)
  - Crohn^s disease [None]
  - Pulmonary thrombosis [None]
  - Abnormal dreams [None]
  - Hypersomnia [None]
  - Dyspnoea [None]
  - Drug dose omission [None]
